FAERS Safety Report 19436719 (Version 2)
Quarter: 2021Q2

REPORT INFORMATION
  Report Type: Spontaneous
  Country: US (occurrence: US)
  Receive Date: 20210618
  Receipt Date: 20210623
  Transmission Date: 20210717
  Serious: No
  Sender: FDA-Public Use
  Company Number: US-UNITED THERAPEUTICS-UNT-2021-008149

PATIENT
  Age: 49 Year
  Sex: Female
  Weight: 107.94 kg

DRUGS (5)
  1. REMODULIN [Suspect]
     Active Substance: TREPROSTINIL
     Dosage: 0.015 ?G/KG, CONTINUING
     Route: 058
  2. SILDENAFIL. [Concomitant]
     Active Substance: SILDENAFIL
     Indication: PRODUCT USED FOR UNKNOWN INDICATION
     Dosage: UNK
     Route: 065
  3. REMODULIN [Suspect]
     Active Substance: TREPROSTINIL
     Dosage: 0.007 ?G/KG, CONTINUING
     Route: 058
  4. OPSUMIT [Concomitant]
     Active Substance: MACITENTAN
     Indication: PRODUCT USED FOR UNKNOWN INDICATION
     Dosage: UNK
     Route: 065
  5. REMODULIN [Suspect]
     Active Substance: TREPROSTINIL
     Indication: PULMONARY ARTERIAL HYPERTENSION
     Dosage: UNK, CONTINUING
     Route: 058
     Dates: start: 20210424

REACTIONS (10)
  - Infusion site haemorrhage [Unknown]
  - Infusion site reaction [Unknown]
  - Infusion site pain [Unknown]
  - Fatigue [Unknown]
  - Cough [Unknown]
  - Infusion site swelling [Unknown]
  - Infusion site discolouration [Unknown]
  - Dyspnoea [Unknown]
  - Myalgia [Unknown]
  - Infusion site erythema [Unknown]

NARRATIVE: CASE EVENT DATE: 202106
